FAERS Safety Report 18118937 (Version 2)
Quarter: 2020Q3

REPORT INFORMATION
  Report Type: Spontaneous
  Country: US (occurrence: US)
  Receive Date: 20200806
  Receipt Date: 20200902
  Transmission Date: 20201103
  Serious: Yes (Other)
  Sender: FDA-Public Use
  Company Number: US-PFIZER INC-2020297011

PATIENT
  Age: 49 Year
  Sex: Female

DRUGS (1)
  1. IBRANCE [Suspect]
     Active Substance: PALBOCICLIB
     Indication: BREAST CANCER FEMALE
     Dosage: 125 MG, CYCLIC (QD (ONCE A DAY)X X 21 Q 28 DAYS)
     Dates: start: 20200707

REACTIONS (3)
  - Thrombosis [Not Recovered/Not Resolved]
  - Rash [Unknown]
  - Peripheral swelling [Not Recovered/Not Resolved]
